FAERS Safety Report 7984495-2 (Version None)
Quarter: 2011Q4

REPORT INFORMATION
  Report Type: 
  Country: None (occurrence: None)
  Receive Date: 20111214
  Receipt Date: 20111205
  Transmission Date: 20120403
  Serious: Yes (Hospitalization, Other)
  Sender: FDA-Public Use
  Company Number: 2010JP001882

PATIENT
  Age: 3 Year
  Sex: Female

DRUGS (7)
  1. PROGRAF [Suspect]
     Indication: PROPHYLAXIS AGAINST GRAFT VERSUS HOST DISEASE
     Dosage: ORAL
     Route: 048
  2. ZETBULIN (ANTILYMPHOCYTE IMMUNOGLOBULIN (HORSE)) [Concomitant]
  3. METHOTREXATE [Concomitant]
  4. PREDNISOLONE [Concomitant]
  5. PROGRAF [Suspect]
     Indication: PROPHYLAXIS AGAINST GRAFT VERSUS HOST DISEASE
     Dosage: 0.03 MG/KG, /D
     Dates: start: 20080529
  6. FLUDARABINE PHOSPHATE [Concomitant]
  7. MELPHALAN HYDROCHLORIDE [Concomitant]

REACTIONS (7)
  - CHRONIC GRAFT VERSUS HOST DISEASE [None]
  - DRUG INEFFECTIVE [None]
  - CYTOMEGALOVIRUS VIRAEMIA [None]
  - STEM CELL TRANSPLANT [None]
  - EPSTEIN-BARR VIRUS INFECTION [None]
  - ACUTE GRAFT VERSUS HOST DISEASE [None]
  - ABSCESS NECK [None]
